FAERS Safety Report 14227183 (Version 3)
Quarter: 2018Q2

REPORT INFORMATION
  Report Type: Report from Study
  Country: US (occurrence: US)
  Receive Date: 20171127
  Receipt Date: 20180502
  Transmission Date: 20180711
  Serious: Yes (Death, Hospitalization)
  Sender: FDA-Public Use
  Company Number: US-TESARO, INC.-US-2017TSO04096

PATIENT

DRUGS (1)
  1. ZEJULA [Suspect]
     Active Substance: NIRAPARIB
     Indication: OVARIAN CANCER
     Dosage: 300 MG, QD
     Route: 048

REACTIONS (2)
  - Ill-defined disorder [Unknown]
  - Disease progression [Fatal]

NARRATIVE: CASE EVENT DATE: 20171117
